FAERS Safety Report 20941158 (Version 3)
Quarter: 2022Q3

REPORT INFORMATION
  Report Type: Spontaneous
  Country: JP (occurrence: JP)
  Receive Date: 20220609
  Receipt Date: 20220809
  Transmission Date: 20221027
  Serious: No
  Sender: FDA-Public Use
  Company Number: JP-NOVARTISPH-NVSJ2022JP091867

PATIENT
  Age: 86 Year
  Sex: Female

DRUGS (1)
  1. GLYCOPYRROLATE\INDACATEROL\MOMETASONE FUROATE [Suspect]
     Active Substance: GLYCOPYRROLATE\INDACATEROL\MOMETASONE FUROATE
     Indication: Asthma
     Dosage: 1DF:INDACATEROL 150UG,GLYCOPYRRONIUM 50UG,MOMETASONE FUROATE 160UG
     Route: 055

REACTIONS (1)
  - Device difficult to use [Unknown]
